FAERS Safety Report 8204421-0 (Version None)
Quarter: 2012Q1

REPORT INFORMATION
  Report Type: 
  Country: None (occurrence: None)
  Receive Date: 20120313
  Receipt Date: 20120313
  Transmission Date: 20120608
  Serious: Yes (Life-Threatening, Disabling)
  Sender: FDA-Public Use
  Company Number: None

PATIENT
  Age: 54 Year
  Sex: Male
  Weight: 117.93 kg

DRUGS (2)
  1. CYMBALTA [Suspect]
     Indication: MAJOR DEPRESSION
     Dosage: 60.0 MG
     Route: 048
     Dates: start: 20090807, end: 20120429
  2. CYMBALTA [Suspect]
     Indication: BIPOLAR I DISORDER
     Dosage: 60.0 MG
     Route: 048
     Dates: start: 20090807, end: 20120429

REACTIONS (10)
  - ALCOHOL USE [None]
  - DIZZINESS [None]
  - INSOMNIA [None]
  - LOSS OF EMPLOYMENT [None]
  - EMOTIONAL DISORDER [None]
  - HAEMORRHOIDAL HAEMORRHAGE [None]
  - CONDITION AGGRAVATED [None]
  - CHRONIC HEPATIC FAILURE [None]
  - APHAGIA [None]
  - BIPOLAR DISORDER [None]
